FAERS Safety Report 8525572-7 (Version None)
Quarter: 2012Q3

REPORT INFORMATION
  Report Type: 
  Country: None (occurrence: None)
  Receive Date: 20120710
  Receipt Date: 20120627
  Transmission Date: 20120928
  Serious: Yes (Hospitalization)
  Sender: FDA-Public Use
  Company Number: 2012-01001

PATIENT
  Age: 54 Year
  Sex: Male
  Weight: 86 kg

DRUGS (12)
  1. SIMVASTATIN [Suspect]
     Indication: BLOOD CHOLESTEROL INCREASED
     Dosage: ,ORAL
     Route: 048
     Dates: start: 20120515, end: 20120515
  2. SIMVASTATIN [Suspect]
     Indication: BLOOD TRIGLYCERIDES INCREASED
     Dosage: ,ORAL
     Route: 048
     Dates: start: 20120515, end: 20120515
  3. PREDNISOLONE [Concomitant]
  4. CICLOSPORIN  UNKNOWN [Concomitant]
  5. ACICLOVIR UNKNOWN [Concomitant]
  6. SULPHAMETHOXAZOLE + TRIMETHOPRIM (CO-TRIMOXAZOLE)(UNKNOWN) [Concomitant]
  7. MYCOPHENOLATE MOFETIL [Concomitant]
  8. OMEPRAZOLE [Concomitant]
  9. DILTIAZEM HYDROCHLORIDE (TILDIEM LA)(UNKNOWN) [Concomitant]
  10. ITRACONAZOLE [Concomitant]
  11. PHENOXYMETHYL PENICILLIN [Concomitant]
  12. QUININE SULPHATE (UNKNOWN) [Concomitant]

REACTIONS (1)
  - RHABDOMYOLYSIS [None]
